FAERS Safety Report 9379412 (Version 3)
Quarter: 2014Q1

REPORT INFORMATION
  Report Type: Spontaneous
  Country: US (occurrence: US)
  Receive Date: 20130702
  Receipt Date: 20140311
  Transmission Date: 20141002
  Serious: Yes (Other)
  Sender: FDA-Public Use
  Company Number: US-PFIZER INC-2013194887

PATIENT
  Age: 54 Year
  Sex: Male

DRUGS (9)
  1. VIAGRA [Suspect]
     Dosage: 100 MG, DAILY AS NEEDED
     Route: 048
  2. LISINOPRIL [Concomitant]
     Dosage: UNK
  3. SIMVASTATIN [Concomitant]
     Dosage: UNK
  4. AMITRIPTYLINE [Concomitant]
     Dosage: UNK
  5. ASA [Concomitant]
     Dosage: UNK
  6. CITALOPRAM [Concomitant]
     Dosage: UNK
  7. GABAPENTIN [Concomitant]
  8. INSULIN ASPART [Concomitant]
     Dosage: UNK
  9. INSULIN GLARGINE [Concomitant]
     Dosage: UNK

REACTIONS (3)
  - Muscle rupture [Unknown]
  - Radiculopathy [Unknown]
  - Impaired work ability [Unknown]
